FAERS Safety Report 15248569 (Version 1)
Quarter: 2018Q3

REPORT INFORMATION
  Report Type: Spontaneous
  Country: US (occurrence: US)
  Receive Date: 20180715
  Receipt Date: 20180715
  Transmission Date: 20181010
  Serious: Yes (Hospitalization)
  Sender: FDA-Public Use
  Company Number: None

PATIENT
  Age: 20 Year
  Sex: Female

DRUGS (3)
  1. THE PILL [Concomitant]
  2. CBD OIL [Concomitant]
     Active Substance: CANNABIDIOL
  3. LAMOTRIGINE. [Suspect]
     Active Substance: LAMOTRIGINE
     Indication: PETIT MAL EPILEPSY
     Dosage: ?          QUANTITY:1 TABLET(S);?
     Route: 048
     Dates: end: 20180615

REACTIONS (18)
  - Decreased appetite [None]
  - Aphasia [None]
  - Impaired self-care [None]
  - Hallucination [None]
  - Fatigue [None]
  - Impaired work ability [None]
  - Staring [None]
  - Seizure [None]
  - Urinary retention [None]
  - Apathy [None]
  - Inappropriate affect [None]
  - Abnormal behaviour [None]
  - Balance disorder [None]
  - Amnesia [None]
  - Coma [None]
  - Depression [None]
  - Weight decreased [None]
  - Social avoidant behaviour [None]

NARRATIVE: CASE EVENT DATE: 20180525
